FAERS Safety Report 10293147 (Version 1)
Quarter: 2014Q3

REPORT INFORMATION
  Report Type: Spontaneous
  Country: US (occurrence: US)
  Receive Date: 20140710
  Receipt Date: 20140710
  Transmission Date: 20150326
  Serious: No
  Sender: FDA-Public Use
  Company Number: US-PURDUE-USA-2013-0108511

PATIENT
  Sex: Female
  Weight: 158.73 kg

DRUGS (2)
  1. BUTRANS [Suspect]
     Active Substance: BUPRENORPHINE
     Indication: NEURALGIA
     Dosage: 10 MCG/HR, WEEKLY
     Route: 062
  2. HYDROCODONE [Concomitant]
     Active Substance: HYDROCODONE
     Indication: BREAKTHROUGH PAIN

REACTIONS (6)
  - Breakthrough pain [Unknown]
  - Hyperhidrosis [Unknown]
  - Product quality issue [Unknown]
  - Product adhesion issue [Unknown]
  - Neuralgia [Unknown]
  - Drug withdrawal syndrome [Unknown]
